FAERS Safety Report 7730288-0 (Version None)
Quarter: 2011Q3

REPORT INFORMATION
  Report Type: 
  Country: None (occurrence: None)
  Receive Date: 20110906
  Receipt Date: 20110823
  Transmission Date: 20111222
  Serious: Yes (Other)
  Sender: FDA-Public Use
  Company Number: US-ELI_LILLY_AND_COMPANY-US201108007761

PATIENT
  Sex: Female

DRUGS (1)
  1. FORTEO [Suspect]
     Dosage: UNK

REACTIONS (5)
  - MALAISE [None]
  - WEIGHT DECREASED [None]
  - ASTHENIA [None]
  - VOMITING [None]
  - LOSS OF CONSCIOUSNESS [None]
